FAERS Safety Report 4978386-9 (Version None)
Quarter: 2006Q2

REPORT INFORMATION
  Report Type: 
  Country: None (occurrence: None)
  Receive Date: 20060414
  Receipt Date: 20060405
  Transmission Date: 20061013
  Serious: Yes (Hospitalization)
  Sender: FDA-Public Use
  Company Number: ERP06000036

PATIENT
  Age: 57 Year
  Sex: Female

DRUGS (12)
  1. DANTRIUM [Suspect]
     Dosage: 25 MG, 2/DAY, ORAL
     Route: 048
     Dates: start: 20060208, end: 20060228
  2. GABAPENTIN [Concomitant]
  3. ZOLOFT [Concomitant]
  4. SUBUTEX [Concomitant]
  5. ACETAMINOPHEN [Concomitant]
  6. MYOLASTAN (TETRAZEPAM) [Concomitant]
  7. LIORESAL [Concomitant]
  8. TARDYFERON  /GFR/ (FERROUS SULFATE) [Concomitant]
  9. CLONAZEPAM [Concomitant]
  10. IMOVANE (ZOPICLONE) [Concomitant]
  11. TRAMADOL HCL [Concomitant]
  12. CETORNAN (ORNITHINE OXOGLURATE) [Concomitant]

REACTIONS (3)
  - EOSINOPHILIA [None]
  - NEUTROPENIA [None]
  - WHITE BLOOD CELL COUNT DECREASED [None]
